FAERS Safety Report 4798862-1 (Version None)
Quarter: 2005Q4

REPORT INFORMATION
  Report Type: 
  Country: None (occurrence: None)
  Receive Date: 20051014
  Receipt Date: 20051008
  Transmission Date: 20060501
  Serious: Yes (Other)
  Sender: FDA-Public Use
  Company Number: GB-GLAXOSMITHKLINE-B0396663B

PATIENT

DRUGS (6)
  1. AMOXICILLIN [Suspect]
  2. ANAFRANIL [Suspect]
  3. LACTULOSE [Suspect]
  4. CYCLIZINE [Suspect]
  5. GAVISCON [Suspect]
  6. SENNA [Suspect]

REACTIONS (5)
  - CAESAREAN SECTION [None]
  - DRUG EXPOSURE DURING PREGNANCY [None]
  - JAUNDICE [None]
  - JAUNDICE NEONATAL [None]
  - PREMATURE LABOUR [None]
